FAERS Safety Report 17193349 (Version 1)
Quarter: 2019Q4

REPORT INFORMATION
  Report Type: Report from Study
  Country: US (occurrence: US)
  Receive Date: 20191223
  Receipt Date: 20191223
  Transmission Date: 20200122
  Serious: Yes (Hospitalization, Other)
  Sender: FDA-Public Use
  Company Number: US-009507513-1802USA005613

PATIENT
  Age: 66 Year
  Sex: Male
  Weight: 74.83 kg

DRUGS (17)
  1. CISPLATIN. [Suspect]
     Active Substance: CISPLATIN
     Dosage: UNK
     Dates: start: 20180508
  2. FOLIC ACID. [Concomitant]
     Active Substance: FOLIC ACID
     Dosage: 1 MILLIGRAM, QD
     Route: 048
  3. LASIX [Concomitant]
     Active Substance: FUROSEMIDE
     Indication: PERIPHERAL SWELLING
     Dosage: EVERY OTHER DAY
     Route: 048
  4. PEMBROLIZUMAB. [Suspect]
     Active Substance: PEMBROLIZUMAB
     Indication: NON-SMALL CELL LUNG CANCER STAGE IV
     Dosage: 200 MILLIGRAM, EVERY 3 WEEKS; ADMINISTERED VIA POWER PORT
     Route: 042
     Dates: start: 20180205, end: 20191016
  5. CISPLATIN. [Suspect]
     Active Substance: CISPLATIN
     Dosage: UNK
     Dates: start: 20180620, end: 20180801
  6. DECADRON [Suspect]
     Active Substance: DEXAMETHASONE
     Indication: NON-SMALL CELL LUNG CANCER STAGE IV
     Dosage: THE DAY BEFORE AND THE AFTER AN INFUSION
     Route: 048
  7. ASPIRIN. [Concomitant]
     Active Substance: ASPIRIN
     Indication: ARTHRITIS
     Dosage: WHEN NEEDED
  8. PEMBROLIZUMAB. [Suspect]
     Active Substance: PEMBROLIZUMAB
     Dosage: 200 MILLIGRAM, EVERY 3 WEEKS; ADMINISTERED VIA POWER PORT
     Route: 042
     Dates: start: 20191107
  9. CISPLATIN. [Suspect]
     Active Substance: CISPLATIN
     Dosage: UNK
     Dates: start: 20180530
  10. ALIMTA [Suspect]
     Active Substance: PEMETREXED DISODIUM
     Indication: NON-SMALL CELL LUNG CANCER STAGE IV
     Dosage: EVERY 3 WEEKS; ADMINISTERED VIA POWER PORT
     Route: 042
     Dates: start: 20180205
  11. BENAZEPRIL HYDROCHLORIDE. [Concomitant]
     Active Substance: BENAZEPRIL HYDROCHLORIDE
     Dosage: UNK
     Dates: end: 201805
  12. EMEND [Suspect]
     Active Substance: APREPITANT
     Indication: NON-SMALL CELL LUNG CANCER STAGE IV
     Dosage: UNK, Q3W
     Route: 042
     Dates: start: 201906
  13. AMLODIPINE [Concomitant]
     Active Substance: AMLODIPINE BESYLATE
     Indication: HYPERTENSION
     Dosage: UNK
     Route: 048
  14. AMLODIPINE [Concomitant]
     Active Substance: AMLODIPINE BESYLATE
     Dosage: DOSE REDUCED TO 5 MG, UNK
     Route: 048
     Dates: start: 201804
  15. VITAMINS (UNSPECIFIED) [Concomitant]
     Active Substance: VITAMINS
     Dosage: EVERY DAY
  16. ZOFRAN [Suspect]
     Active Substance: ONDANSETRON HYDROCHLORIDE
     Indication: NAUSEA
     Dosage: UNK, Q3W
     Dates: start: 20180205
  17. CISPLATIN. [Suspect]
     Active Substance: CISPLATIN
     Dosage: UNK
     Dates: start: 20180810, end: 20180810

REACTIONS (71)
  - Malignant pleural effusion [Unknown]
  - Arthritis [Not Recovered/Not Resolved]
  - Agitation [Unknown]
  - Depressed mood [Unknown]
  - Taste disorder [Unknown]
  - Nasopharyngitis [Unknown]
  - Feeling cold [Recovered/Resolved]
  - Mental disorder [Unknown]
  - Panic reaction [Unknown]
  - Obsessive-compulsive disorder [Unknown]
  - Peripheral swelling [Unknown]
  - Malaise [Recovered/Resolved]
  - Central venous catheterisation [Unknown]
  - Dyspepsia [Recovered/Resolved]
  - Pain [Recovered/Resolved]
  - Decreased appetite [Recovered/Resolved]
  - Malaise [Unknown]
  - Dyspnoea [Unknown]
  - Insomnia [Unknown]
  - Malignant neoplasm progression [Unknown]
  - Chest pain [Recovered/Resolved]
  - Blood pressure fluctuation [Unknown]
  - Hypotension [Unknown]
  - Feeling abnormal [Recovered/Resolved]
  - Adverse drug reaction [Unknown]
  - Blood glucose fluctuation [Not Recovered/Not Resolved]
  - Dry mouth [Unknown]
  - Fatigue [Recovering/Resolving]
  - Fatigue [Recovered/Resolved]
  - Fatigue [Recovered/Resolved]
  - Pruritus [Unknown]
  - Pericardial effusion [Unknown]
  - Nervousness [Unknown]
  - Negative thoughts [Unknown]
  - Skin wound [Unknown]
  - Abdominal discomfort [Recovered/Resolved]
  - Pain [Unknown]
  - Insomnia [Unknown]
  - Discomfort [Recovered/Resolved]
  - Headache [Unknown]
  - Dizziness [Unknown]
  - Nausea [Recovered/Resolved]
  - Nausea [Unknown]
  - Product use in unapproved indication [Unknown]
  - Nasopharyngitis [Recovered/Resolved]
  - Flatulence [Unknown]
  - Poor quality sleep [Unknown]
  - Pain [Unknown]
  - Fatigue [Unknown]
  - Dizziness [Recovered/Resolved]
  - Constipation [Unknown]
  - Weight increased [Unknown]
  - Anxiety [Unknown]
  - Muscular weakness [Unknown]
  - Taste disorder [Unknown]
  - Apathy [Unknown]
  - Dry eye [Recovered/Resolved]
  - Dry mouth [Recovering/Resolving]
  - Arthralgia [Not Recovered/Not Resolved]
  - Dyspnoea [Unknown]
  - Nausea [Unknown]
  - Pruritus [Recovering/Resolving]
  - Inappropriate schedule of product administration [Unknown]
  - Sensitivity to weather change [Unknown]
  - Feeling abnormal [Unknown]
  - Increased appetite [Unknown]
  - Dry mouth [Recovered/Resolved]
  - Pain in extremity [Unknown]
  - Back pain [Unknown]
  - Constipation [Recovered/Resolved]
  - Arthritis [Unknown]

NARRATIVE: CASE EVENT DATE: 2018
